FAERS Safety Report 10892705 (Version 2)
Quarter: 2015Q2

REPORT INFORMATION
  Report Type: Report from Study
  Country: US (occurrence: US)
  Receive Date: 20150306
  Receipt Date: 20150407
  Transmission Date: 20150821
  Serious: Yes (Hospitalization)
  Sender: FDA-Public Use
  Company Number: US-BAYER-2015-028486

PATIENT
  Age: 64 Year
  Sex: Female
  Weight: 68 kg

DRUGS (9)
  1. SORAFENIB (RAF KINASE INHIBITOR) [Suspect]
     Active Substance: SORAFENIB
     Indication: GLIOBLASTOMA
     Dosage: 400 MG
     Route: 048
     Dates: start: 20150312, end: 20150318
  2. DIVALPROEX [Concomitant]
     Active Substance: DIVALPROEX SODIUM
     Dosage: 500MG IN AM AND AFTERNOON, 250 MG Q HS
     Route: 048
  3. ZOFRAN [Concomitant]
     Active Substance: ONDANSETRON HYDROCHLORIDE
     Dosage: 5 MG, EVERY 8 HRS PRN
  4. SORAFENIB (RAF KINASE INHIBITOR) [Suspect]
     Active Substance: SORAFENIB
     Indication: GLIOBLASTOMA
     Dosage: 400 MG
     Route: 048
     Dates: start: 20150226, end: 20150304
  5. EVEROLIMUS [Suspect]
     Active Substance: EVEROLIMUS
     Indication: GLIOBLASTOMA
     Dosage: 5MG
     Dates: start: 20150212
  6. SORAFENIB (RAF KINASE INHIBITOR) [Suspect]
     Active Substance: SORAFENIB
     Indication: GLIOBLASTOMA
     Dosage: 400 MG
     Route: 048
     Dates: start: 20150212, end: 20150214
  7. DIVALPROEX [Concomitant]
     Active Substance: DIVALPROEX SODIUM
     Dosage: 250 MG, UNK
  8. GABAPENTIN. [Concomitant]
     Active Substance: GABAPENTIN
     Dosage: 300 MG, 5ID
     Route: 048
  9. AFINITOR [Concomitant]
     Active Substance: EVEROLIMUS
     Dosage: 5 MG, QD
     Route: 048

REACTIONS (9)
  - Generalised tonic-clonic seizure [None]
  - Fatigue [None]
  - Vomiting [None]
  - Diarrhoea [None]
  - Headache [None]
  - Lower gastrointestinal haemorrhage [None]
  - Nausea [None]
  - Lung infection [None]
  - Myalgia [None]

NARRATIVE: CASE EVENT DATE: 201502
